FAERS Safety Report 16341182 (Version 1)
Quarter: 2019Q2

REPORT INFORMATION
  Report Type: Spontaneous
  Country: US (occurrence: US)
  Receive Date: 20190522
  Receipt Date: 20190522
  Transmission Date: 20190711
  Serious: No
  Sender: FDA-Public Use
  Company Number: US-GILEAD-2019-0409261

PATIENT
  Age: 66 Year
  Sex: Female

DRUGS (3)
  1. EYE DROPS [NAPHAZOLINE HYDROCHLORIDE] [Concomitant]
  2. HARVONI [Suspect]
     Active Substance: LEDIPASVIR\SOFOSBUVIR
     Indication: CHRONIC HEPATITIS C
     Dosage: 1 DOSAGE FORM
     Route: 048
     Dates: start: 201904
  3. MULTIVITAMIN [VITAMINS NOS] [Concomitant]

REACTIONS (1)
  - Product dose omission [Recovered/Resolved]
